FAERS Safety Report 7605841-5 (Version None)
Quarter: 2011Q3

REPORT INFORMATION
  Report Type: 
  Country: None (occurrence: None)
  Receive Date: 20110705
  Receipt Date: 20110622
  Transmission Date: 20111222
  Serious: Yes (Death)
  Sender: FDA-Public Use
  Company Number: UTC-008115

PATIENT
  Age: 64 Year
  Sex: Female
  Weight: 71.2 kg

DRUGS (4)
  1. REVATIO [Concomitant]
  2. TRACLEER [Concomitant]
  3. DIURETICS (DIURETICS) [Concomitant]
  4. TYVASO [Suspect]
     Indication: COR PULMONALE CHRONIC
     Dosage: 120 MCG (30 MCG, 4 IN 1 D) INHALATION
     Route: 055
     Dates: start: 20110128

REACTIONS (1)
  - DEATH [None]
